FAERS Safety Report 5451298-2 (Version None)
Quarter: 2007Q3

REPORT INFORMATION
  Report Type: 
  Country: None (occurrence: None)
  Receive Date: 20070911
  Receipt Date: 20070911
  Transmission Date: 20080115
  Serious: Yes (Life-Threatening)
  Sender: FDA-Public Use
  Company Number: None

PATIENT
  Age: 73 Year
  Sex: Female
  Weight: 62 kg

DRUGS (1)
  1. IRON DEXTRAN [Suspect]
     Indication: ANAEMIA
     Dosage: 25MG ONE TIME DOSE IV
     Route: 042
     Dates: start: 20070823, end: 20070823

REACTIONS (2)
  - ANGIOEDEMA [None]
  - BLOOD PRESSURE DECREASED [None]
